FAERS Safety Report 17826393 (Version 4)
Quarter: 2020Q2

REPORT INFORMATION
  Report Type: Spontaneous
  Country: FR (occurrence: FR)
  Receive Date: 20200527
  Receipt Date: 20200630
  Transmission Date: 20200714
  Serious: Yes (Hospitalization, Other)
  Sender: FDA-Public Use
  Company Number: FR-AUROBINDO-AUR-APL-2020-025922

PATIENT
  Age: 65 Year
  Sex: Male

DRUGS (12)
  1. VORICONAZOLE. [Suspect]
     Active Substance: VORICONAZOLE
     Dosage: 4 MILLIGRAM/KILOGRAM, TWO TIMES A DAY, (12 H)
     Route: 065
  2. VORICONAZOLE. [Suspect]
     Active Substance: VORICONAZOLE
     Dosage: UNK, TWO TIMES A DAY, (1 DAY)
     Route: 048
  3. MYCOPHENOLATE MOFETIL. [Suspect]
     Active Substance: MYCOPHENOLATE MOFETIL
     Indication: PRODUCT USED FOR UNKNOWN INDICATION
     Dosage: UNK
     Route: 065
  4. TACROLIMUS. [Suspect]
     Active Substance: TACROLIMUS
     Indication: HEART TRANSPLANT REJECTION
  5. VORICONAZOLE. [Suspect]
     Active Substance: VORICONAZOLE
     Indication: BRONCHOPULMONARY ASPERGILLOSIS
     Dosage: 6 MILLIGRAM/KILOGRAM, EVERY OTHER DAY
     Route: 042
  6. VORICONAZOLE. [Suspect]
     Active Substance: VORICONAZOLE
     Dosage: 6 MILLIGRAM/KILOGRAM, TWO TIMES A DAY, ON FIRST DAY
     Route: 042
  7. VORICONAZOLE. [Suspect]
     Active Substance: VORICONAZOLE
     Indication: ASPERGILLUS INFECTION
     Dosage: 4 MILLIGRAM/KILOGRAM, EVERY OTHER DAY
     Route: 042
  8. TACROLIMUS. [Suspect]
     Active Substance: TACROLIMUS
     Indication: PRODUCT USED FOR UNKNOWN INDICATION
     Dosage: 0.15 MILLIGRAM/KILOGRAM WITH RESIDUAL TARGET BETWEEN 8 AND 10 NG/ML
     Route: 065
     Dates: start: 2017
  9. VORICONAZOLE. [Suspect]
     Active Substance: VORICONAZOLE
     Indication: OSTEOMYELITIS FUNGAL
     Dosage: UNK
     Route: 048
  10. PREDNISONE TABLET [Suspect]
     Active Substance: PREDNISONE
     Indication: HEART TRANSPLANT REJECTION
     Dosage: 12.5 MILLIGRAM, ONCE A DAY
     Route: 065
     Dates: start: 2017
  11. VORICONAZOLE. [Suspect]
     Active Substance: VORICONAZOLE
     Dosage: 4 MILLIGRAM/KILOGRAM, TWO TIMES A DAY
     Route: 042
  12. MYCOPHENOLATE MOFETIL. [Suspect]
     Active Substance: MYCOPHENOLATE MOFETIL
     Indication: HEART TRANSPLANT REJECTION
     Dosage: 500 MILLIGRAM, TWO TIMES A DAY
     Route: 065
     Dates: start: 2017

REACTIONS (8)
  - Neurotoxicity [Unknown]
  - Osteomyelitis fungal [Recovered/Resolved]
  - Aspergillus infection [Recovered/Resolved]
  - Peripheral sensorimotor neuropathy [Recovered/Resolved]
  - Nervous system disorder [Recovered/Resolved]
  - Skin toxicity [Recovered/Resolved]
  - Photosensitivity reaction [Recovered/Resolved]
  - Peripheral sensory neuropathy [Unknown]
